FAERS Safety Report 9858483 (Version 1)
Quarter: 2014Q1

REPORT INFORMATION
  Report Type: Spontaneous
  Country: US (occurrence: None)
  Receive Date: 20140129
  Receipt Date: 20140129
  Transmission Date: 20141002
  Serious: Yes (Death)
  Sender: FDA-Public Use
  Company Number: 2014AP000642

PATIENT
  Age: 44 Year
  Sex: Female

DRUGS (3)
  1. SERTRALINE HYDROCHLORIDE TABLETS [Suspect]
     Route: 048
  2. ALPRAZOLAM [Suspect]
     Route: 048
  3. ACETAMINOPHEN W/HYDROCODONE [Suspect]
     Route: 048

REACTIONS (1)
  - Drug abuse [None]
